FAERS Safety Report 8217046-8 (Version None)
Quarter: 2012Q1

REPORT INFORMATION
  Report Type: 
  Country: None (occurrence: None)
  Receive Date: 20120319
  Receipt Date: 20120314
  Transmission Date: 20120608
  Serious: No
  Sender: FDA-Public Use
  Company Number: US-BIOGENIDEC-2012BI004400

PATIENT
  Age: 45 Year
  Sex: Female

DRUGS (1)
  1. TYSABRI [Suspect]
     Indication: MULTIPLE SCLEROSIS
     Route: 042
     Dates: start: 20110614, end: 20120101

REACTIONS (8)
  - BACK PAIN [None]
  - OEDEMA PERIPHERAL [None]
  - FALL [None]
  - PAIN IN EXTREMITY [None]
  - ASTHENIA [None]
  - ABASIA [None]
  - FEELING ABNORMAL [None]
  - HYPERTENSION [None]
